FAERS Safety Report 4544551-8 (Version None)
Quarter: 2005Q1

REPORT INFORMATION
  Report Type: 
  Country: None (occurrence: None)
  Receive Date: 20050104
  Receipt Date: 20041228
  Transmission Date: 20050727
  Serious: Yes (Death)
  Sender: FDA-Public Use
  Company Number: 04-12-1682

PATIENT
  Age: 75 Year
  Sex: Male

DRUGS (1)
  1. CLOZAPINE [Suspect]
     Dosage: 37.5MG QD ORAL
     Route: 048
     Dates: start: 20040401, end: 20041101

REACTIONS (1)
  - PNEUMONIA [None]
